FAERS Safety Report 7438330-1 (Version None)
Quarter: 2011Q2

REPORT INFORMATION
  Report Type: 
  Country: None (occurrence: None)
  Receive Date: 20110426
  Receipt Date: 20110425
  Transmission Date: 20111010
  Serious: No
  Sender: FDA-Public Use
  Company Number: US-TEVA-277951USA

PATIENT
  Age: 63 Year
  Sex: Male

DRUGS (1)
  1. ALBUTEROL SULATE [Suspect]
     Route: 055

REACTIONS (1)
  - DRUG INEFFECTIVE [None]
